FAERS Safety Report 4373987-3 (Version None)
Quarter: 2004Q2

REPORT INFORMATION
  Report Type: 
  Country: None (occurrence: None)
  Receive Date: 20040603
  Receipt Date: 20040518
  Transmission Date: 20050107
  Serious: Yes (Death)
  Sender: FDA-Public Use
  Company Number: EWC040539350

PATIENT
  Age: 36 Year
  Sex: Male

DRUGS (3)
  1. ZYPREXA [Suspect]
     Indication: PSYCHOMOTOR AGITATION
     Dosage: 10 MG
     Dates: start: 20040501
  2. LORAZEPAM [Concomitant]
  3. TALOFEN (PROMAZINE HYDROCHLORIDE) [Concomitant]

REACTIONS (1)
  - DEATH [None]
